FAERS Safety Report 13652938 (Version 1)
Quarter: 2017Q2

REPORT INFORMATION
  Report Type: Spontaneous
  Country: US (occurrence: US)
  Receive Date: 20170614
  Receipt Date: 20170614
  Transmission Date: 20170830
  Serious: No
  Sender: FDA-Public Use
  Company Number: US-ROCHE-1317889

PATIENT
  Sex: Female

DRUGS (5)
  1. TYLENOL [Concomitant]
     Active Substance: ACETAMINOPHEN
  2. ARMOUR THYROID [Concomitant]
     Active Substance: THYROID, PORCINE
     Indication: COLORECTAL CANCER
  3. XELODA [Suspect]
     Active Substance: CAPECITABINE
     Dosage: 14 DAYS ON 7 DAYS OFF
     Route: 048
     Dates: start: 20130920
  4. SIMVASTATIN. [Concomitant]
     Active Substance: SIMVASTATIN
  5. XELODA [Suspect]
     Active Substance: CAPECITABINE
     Indication: RECTAL CANCER
     Dosage: 3 TWICE A DAY FOR 5 DAYS ON AND 2 DAYS OFF
     Route: 048
     Dates: start: 20130919

REACTIONS (4)
  - Paraesthesia [Not Recovered/Not Resolved]
  - Sensation of foreign body [Not Recovered/Not Resolved]
  - Abdominal discomfort [Not Recovered/Not Resolved]
  - Nausea [Unknown]
